FAERS Safety Report 19641427 (Version 4)
Quarter: 2022Q1

REPORT INFORMATION
  Report Type: Other
  Country: JP (occurrence: JP)
  Receive Date: 20210730
  Receipt Date: 20220310
  Transmission Date: 20220423
  Serious: Yes (Death, Hospitalization, Other)
  Sender: FDA-Public Use
  Company Number: JP-CHUGAI-2021007676

PATIENT
  Sex: Male
  Weight: 73 kg

DRUGS (2)
  1. TECENTRIQ [Suspect]
     Active Substance: ATEZOLIZUMAB
     Indication: Hepatocellular carcinoma
     Dosage: DATE OF LAST ADMINISTRATION- 03/DEC/2020
     Route: 041
     Dates: start: 20201022, end: 20201203
  2. AVASTIN [Suspect]
     Active Substance: BEVACIZUMAB
     Indication: Hepatocellular carcinoma
     Dosage: DATE OF LAST ADMINISTRATION: 03/DEC/2020
     Route: 041
     Dates: start: 20201022, end: 20201203

REACTIONS (4)
  - Disease progression [Fatal]
  - Haematoma infection [Unknown]
  - Tumour rupture [Unknown]
  - Tumour haemorrhage [Unknown]
